FAERS Safety Report 4724970-7 (Version None)
Quarter: 2005Q3

REPORT INFORMATION
  Report Type: 
  Country: None (occurrence: None)
  Receive Date: 20050726
  Receipt Date: 20050714
  Transmission Date: 20060218
  Serious: Yes (Other)
  Sender: FDA-Public Use
  Company Number: PHNU2005PL02556

PATIENT
  Age: 70 Year
  Sex: Male
  Weight: 76 kg

DRUGS (3)
  1. LAMISIL [Suspect]
     Indication: CANDIDIASIS
     Dosage: 187.5 MG, QD
     Route: 048
     Dates: start: 20050617, end: 20050713
  2. CIPROFLOXACIN [Suspect]
     Indication: PNEUMONIA
     Dates: start: 20050718
  3. RANIGAST [Concomitant]
     Dosage: 1 DF, ONCE/SINGLE
     Route: 048

REACTIONS (14)
  - ASTHENIA [None]
  - BACTERIAL INFECTION [None]
  - COMMUNICATION DISORDER [None]
  - COUGH [None]
  - DISCOMFORT [None]
  - GENERAL PHYSICAL CONDITION ABNORMAL [None]
  - HYPERHIDROSIS [None]
  - INFECTION [None]
  - MALAISE [None]
  - PNEUMONIA [None]
  - PYREXIA [None]
  - RESPIRATORY TRACT HAEMORRHAGE [None]
  - STAPHYLOCOCCAL INFECTION [None]
  - TRACHEOSTOMY MALFUNCTION [None]
